FAERS Safety Report 8156444 (Version 5)
Quarter: 2013Q3

REPORT INFORMATION
  Report Type: Spontaneous
  Country: US (occurrence: US)
  Receive Date: 20110926
  Receipt Date: 20130919
  Transmission Date: 20140515
  Serious: Yes (Hospitalization)
  Sender: FDA-Public Use
  Company Number: US-GLAXOSMITHKLINE-A0915607A

PATIENT
  Age: 42 Year
  Sex: Male
  Weight: 135.5 kg

DRUGS (3)
  1. AVANDIA [Suspect]
     Indication: DIABETES MELLITUS
     Route: 048
     Dates: start: 200101, end: 200607
  2. AVANDARYL [Suspect]
     Indication: DIABETES MELLITUS
     Route: 048
     Dates: start: 200611, end: 200809
  3. AVANDAMET [Suspect]
     Indication: DIABETES MELLITUS
     Route: 048
     Dates: start: 2005

REACTIONS (8)
  - Myocardial infarction [Unknown]
  - Optic ischaemic neuropathy [Unknown]
  - Visual acuity reduced [Unknown]
  - Optic atrophy [Unknown]
  - Angina pectoris [Unknown]
  - Coronary artery disease [Unknown]
  - Chronic obstructive pulmonary disease [Unknown]
  - Hypertension [Unknown]
